FAERS Safety Report 7054680-5 (Version None)
Quarter: 2010Q4

REPORT INFORMATION
  Report Type: 
  Country: None (occurrence: None)
  Receive Date: 20101020
  Receipt Date: 20101012
  Transmission Date: 20110411
  Serious: Yes (Death)
  Sender: FDA-Public Use
  Company Number: US-PFIZER INC-2010108189

PATIENT
  Age: 21 Year
  Sex: Male
  Weight: 76.644 kg

DRUGS (3)
  1. ALPRAZOLAM [Suspect]
     Dosage: UNK
  2. OXYCODONE [Suspect]
     Dosage: UNK
  3. ETHYL ALCOHOL [Suspect]
     Dosage: UNK

REACTIONS (1)
  - DRUG TOXICITY [None]
